FAERS Safety Report 17923917 (Version 1)
Quarter: 2020Q2

REPORT INFORMATION
  Report Type: Spontaneous
  Country: ES (occurrence: ES)
  Receive Date: 20200622
  Receipt Date: 20200622
  Transmission Date: 20200714
  Serious: Yes (Hospitalization)
  Sender: FDA-Public Use
  Company Number: ES-MYLANLABS-2020M1057781

PATIENT
  Age: 86 Year
  Sex: Female

DRUGS (1)
  1. OLMESARTAN MEDOXOMIL. [Suspect]
     Active Substance: OLMESARTAN MEDOXOMIL
     Indication: HYPERTENSION
     Dosage: 40 MILLIGRAM
     Route: 065

REACTIONS (5)
  - Prerenal failure [Recovering/Resolving]
  - Gastrointestinal disorder [Recovering/Resolving]
  - Metabolic acidosis [Recovering/Resolving]
  - Enteritis [Recovering/Resolving]
  - Colitis [Recovering/Resolving]
